FAERS Safety Report 12992921 (Version 1)
Quarter: 2016Q4

REPORT INFORMATION
  Report Type: Spontaneous
  Country: US (occurrence: US)
  Receive Date: 20161202
  Receipt Date: 20161202
  Transmission Date: 20170207
  Serious: Yes (Life-Threatening, Disabling, Other)
  Sender: FDA-Public Use
  Company Number: US-APOTEX-2016AP015490

PATIENT
  Age: 63 Year
  Sex: Female

DRUGS (4)
  1. PAXIL [Suspect]
     Active Substance: PAROXETINE HYDROCHLORIDE
     Indication: DEPRESSION
     Dosage: UNK
     Route: 065
     Dates: start: 2000
  2. WELLBUTRIN [Suspect]
     Active Substance: BUPROPION HYDROCHLORIDE
     Indication: SMOKING CESSATION THERAPY
     Dosage: UNK
     Route: 065
  3. LAMICTAL [Suspect]
     Active Substance: LAMOTRIGINE
     Indication: PRODUCT USED FOR UNKNOWN INDICATION
     Dosage: UNK
     Route: 065
  4. SEROQUEL [Suspect]
     Active Substance: QUETIAPINE FUMARATE
     Indication: PRODUCT USED FOR UNKNOWN INDICATION
     Dosage: UNK
     Route: 065

REACTIONS (16)
  - Delirium [Recovered/Resolved]
  - Feeling abnormal [Unknown]
  - Loss of libido [Unknown]
  - Unevaluable event [Unknown]
  - Tremor [Unknown]
  - Anger [Unknown]
  - Aggression [Unknown]
  - Mania [Unknown]
  - Product use issue [Recovered/Resolved]
  - Depression [Unknown]
  - Disability [Not Recovered/Not Resolved]
  - Major depression [Unknown]
  - Suicidal ideation [Unknown]
  - Off label use [Recovered/Resolved]
  - Sleep disorder [Unknown]
  - Anxiety [Unknown]
